FAERS Safety Report 7277803-1 (Version None)
Quarter: 2011Q1

REPORT INFORMATION
  Report Type: 
  Country: None (occurrence: None)
  Receive Date: 20110207
  Receipt Date: 20110127
  Transmission Date: 20110831
  Serious: Yes (Other)
  Sender: FDA-Public Use
  Company Number: US-JNJFOC-20110107547

PATIENT
  Age: 22 Year
  Sex: Female

DRUGS (2)
  1. REMICADE [Suspect]
     Indication: CROHN'S DISEASE
     Route: 042
  2. IMURAN [Concomitant]

REACTIONS (4)
  - DIARRHOEA HAEMORRHAGIC [None]
  - COLECTOMY [None]
  - SURGERY [None]
  - FISTULA [None]
